FAERS Safety Report 18175536 (Version 1)
Quarter: 2020Q3

REPORT INFORMATION
  Report Type: Spontaneous
  Country: JP (occurrence: JP)
  Receive Date: 20200820
  Receipt Date: 20200820
  Transmission Date: 20201103
  Serious: Yes (Other)
  Sender: FDA-Public Use
  Company Number: JP-CELGENEUS-JPN-20200804046

PATIENT
  Age: 56 Year
  Sex: Male

DRUGS (3)
  1. CARBOPLATIN. [Suspect]
     Active Substance: CARBOPLATIN
     Indication: THYMIC CANCER METASTATIC
     Route: 041
     Dates: start: 201909
  2. ABRAXANE [Suspect]
     Active Substance: PACLITAXEL
     Indication: THYMIC CANCER METASTATIC
     Route: 041
     Dates: start: 201909
  3. ABRAXANE [Suspect]
     Active Substance: PACLITAXEL
     Indication: OFF LABEL USE

REACTIONS (1)
  - Acute promyelocytic leukaemia [Recovering/Resolving]
